FAERS Safety Report 23195379 (Version 1)
Quarter: 2023Q4

REPORT INFORMATION
  Report Type: Spontaneous
  Country: NL (occurrence: NL)
  Receive Date: 20231117
  Receipt Date: 20231117
  Transmission Date: 20240110
  Serious: Yes (Hospitalization)
  Sender: FDA-Public Use
  Company Number: None

PATIENT
  Age: 91 Year
  Sex: Male
  Weight: 59 kg

DRUGS (1)
  1. OXAZEPAM [Suspect]
     Active Substance: OXAZEPAM
     Indication: Tension
     Dosage: 5 MILLIGRAM DAILY; 1D0.5T; OXAZEPAM TABLET 10MG / BRAND NAME NOT SPECIFIED
     Dates: start: 20230914, end: 20231018

REACTIONS (2)
  - Hypotension [Recovering/Resolving]
  - Malaise [Recovering/Resolving]
